FAERS Safety Report 8905361 (Version 1)
Quarter: 2012Q4

REPORT INFORMATION
  Report Type: 
  Country: US (occurrence: US)
  Receive Date: 20121112
  Receipt Date: 20121112
  Transmission Date: 20130627
  Serious: Yes (Other)
  Sender: FDA-Public Use
  Company Number: US-BAYER-2012-116974

PATIENT
  Age: 29 Year
  Sex: Female
  Weight: 58.96 kg

DRUGS (5)
  1. YASMIN [Suspect]
  2. GLUCOPHAGE [Concomitant]
     Dosage: 500 mg, daily
     Route: 048
     Dates: start: 20060517
  3. IBUPROFEN [Concomitant]
     Dosage: 800 mg, QID- PRN
     Route: 048
     Dates: start: 20060517
  4. LORTAB [Concomitant]
  5. TORADOL [Concomitant]

REACTIONS (1)
  - Deep vein thrombosis [Recovering/Resolving]
